FAERS Safety Report 17255081 (Version 4)
Quarter: 2020Q1

REPORT INFORMATION
  Report Type: Spontaneous
  Country: US (occurrence: US)
  Receive Date: 20200109
  Receipt Date: 20200207
  Transmission Date: 20200409
  Serious: Yes (Other)
  Sender: FDA-Public Use
  Company Number: US-AMGEN-USASP2020001707

PATIENT
  Age: 60 Year
  Sex: Female
  Weight: 66.67 kg

DRUGS (21)
  1. LIPITOR [Concomitant]
     Active Substance: ATORVASTATIN CALCIUM
  2. VITAMIN B12 [Concomitant]
     Active Substance: CYANOCOBALAMIN
  3. SILVADENE [Concomitant]
     Active Substance: SILVER SULFADIAZINE
  4. NEURONTIN [Concomitant]
     Active Substance: GABAPENTIN
  5. ADVIL [IBUPROFEN] [Concomitant]
     Active Substance: IBUPROFEN
  6. MOTRIN [Concomitant]
     Active Substance: IBUPROFEN
  7. CLARITIN [Concomitant]
     Active Substance: LORATADINE
  8. CALCIUM [Concomitant]
     Active Substance: CALCIUM
     Dosage: 600 MILLIGRAM, BID
  9. OMEPRAZOLE. [Concomitant]
     Active Substance: OMEPRAZOLE
     Dosage: 40 MILLIGRAM, QD
  10. DIAZEPAM. [Concomitant]
     Active Substance: DIAZEPAM
     Dosage: 5 MILLIGRAM, BID
  11. LIORESAL [Concomitant]
     Active Substance: BACLOFEN
  12. ZESTRIL [Concomitant]
     Active Substance: LISINOPRIL
  13. LORATADINE. [Concomitant]
     Active Substance: LORATADINE
     Dosage: 10 MILLIGRAM, QD
  14. PHENERGAN [Concomitant]
     Active Substance: PROMETHAZINE HYDROCHLORIDE
  15. METFORMIN HYDROCHLORIDE. [Concomitant]
     Active Substance: METFORMIN HYDROCHLORIDE
     Dosage: 500 MILLIGRAM, BID
  16. VITAMIN D3 [Concomitant]
     Active Substance: CHOLECALCIFEROL
     Dosage: 50000 UNITS, UNK
     Route: 048
  17. VITAMIN D3 [Concomitant]
     Active Substance: CHOLECALCIFEROL
     Dosage: 50000 UNITS, UNK
     Route: 048
  18. PRILOSEC [Concomitant]
     Active Substance: OMEPRAZOLE MAGNESIUM
  19. VITAMIN D [ERGOCALCIFEROL] [Concomitant]
     Active Substance: ERGOCALCIFEROL
     Dosage: 5000 UNIT, QD
  20. PROLIA [Suspect]
     Active Substance: DENOSUMAB
     Indication: OSTEOPOROSIS
     Dosage: 60 MILLIGRAM, Q6MO
     Route: 058
     Dates: start: 20180117, end: 20190816
  21. QUESTRAN [Concomitant]
     Active Substance: CHOLESTYRAMINE

REACTIONS (9)
  - Brain natriuretic peptide increased [Unknown]
  - Diabetes mellitus inadequate control [Recovering/Resolving]
  - Chills [Unknown]
  - Peripheral swelling [Recovering/Resolving]
  - Gastrointestinal polyp [Unknown]
  - Anaemia [Not Recovered/Not Resolved]
  - Neuralgia [Unknown]
  - Diarrhoea [Unknown]
  - Pulmonary mass [Unknown]
